FAERS Safety Report 5960958-6 (Version None)
Quarter: 2008Q4

REPORT INFORMATION
  Report Type: 
  Country: None (occurrence: None)
  Receive Date: 20081119
  Receipt Date: 20081107
  Transmission Date: 20090506
  Serious: Yes (Other)
  Sender: FDA-Public Use
  Company Number: GXKR2008US10677

PATIENT
  Age: 63 Year
  Sex: Female

DRUGS (12)
  1. TAMOXIFEN (NGX) (TAMOXIFEN) [Suspect]
     Indication: BREAST CANCER
     Dates: start: 19920101
  2. METHIMAZOLE [Suspect]
     Indication: GOITRE
     Dates: start: 19960101
  3. GABAPENTIN [Suspect]
  4. ANASTROZOLE [Suspect]
     Indication: BREAST CANCER FEMALE
  5. ANASTROZOLE [Suspect]
     Indication: OESTROGEN RECEPTOR ASSAY POSITIVE
  6. LETROZOLE [Suspect]
     Indication: BREAST CANCER FEMALE
  7. LETROZOLE [Suspect]
     Indication: OESTROGEN RECEPTOR ASSAY POSITIVE
  8. TRASTUZUMAB (TRASTUZUMAB) [Suspect]
     Indication: BREAST CANCER FEMALE
  9. TRASTUZUMAB (TRASTUZUMAB) [Suspect]
     Indication: OESTROGEN RECEPTOR ASSAY POSITIVE
  10. FULVESTRANT (FULVESTRANT) [Suspect]
     Indication: BREAST CANCER FEMALE
  11. FULVESTRANT (FULVESTRANT) [Suspect]
     Indication: OESTROGEN RECEPTOR ASSAY POSITIVE
  12. RADIOACTIVE IODINE TREATMENT (NO INGREDIENTS/SUBCUTANCES) [Concomitant]

REACTIONS (5)
  - CUTANEOUS VASCULITIS [None]
  - DRUG ERUPTION [None]
  - OESTROGEN RECEPTOR ASSAY POSITIVE [None]
  - SKIN ULCER [None]
  - TOXIC NODULAR GOITRE [None]
